FAERS Safety Report 24893015 (Version 2)
Quarter: 2025Q3

REPORT INFORMATION
  Report Type: Spontaneous
  Country: US (occurrence: US)
  Receive Date: 20250128
  Receipt Date: 20250810
  Transmission Date: 20251020
  Serious: No
  Sender: ALEXION PHARMACEUTICALS
  Company Number: US-AstraZeneca-CH-00791761AP

PATIENT
  Sex: Male

DRUGS (1)
  1. BYDUREON BCISE [Suspect]
     Active Substance: EXENATIDE
     Dosage: 2 MILLIGRAM, 4 TIMES IN A DAY
     Route: 065
     Dates: start: 202409

REACTIONS (3)
  - Injection site bruising [Unknown]
  - Incorrect dose administered [Unknown]
  - Device delivery system issue [Unknown]
